FAERS Safety Report 4680083-4 (Version None)
Quarter: 2005Q2

REPORT INFORMATION
  Report Type: 
  Country: None (occurrence: None)
  Receive Date: 20050531
  Receipt Date: 20050516
  Transmission Date: 20051028
  Serious: Yes (Other)
  Sender: FDA-Public Use
  Company Number: 213591

PATIENT
  Sex: Female

DRUGS (2)
  1. MABTHERA(RITUXIMAB) CONC FOR SOLUTION FOR INFUSION [Suspect]
     Dosage: SEE IMAGE
     Dates: start: 19981201
  2. MABTHERA(RITUXIMAB) CONC FOR SOLUTION FOR INFUSION [Suspect]
     Dosage: SEE IMAGE
     Dates: start: 20050418

REACTIONS (3)
  - BLOODY DISCHARGE [None]
  - CYST [None]
  - LOCAL SWELLING [None]
